FAERS Safety Report 15995808 (Version 1)
Quarter: 2019Q1

REPORT INFORMATION
  Report Type: Spontaneous
  Country: US (occurrence: US)
  Receive Date: 20190222
  Receipt Date: 20190222
  Transmission Date: 20190418
  Serious: No
  Sender: FDA-Public Use
  Company Number: US-PERRIGO-18US000709

PATIENT
  Age: 60 Year
  Sex: Male
  Weight: 111.11 kg

DRUGS (1)
  1. LOPERAMIDE HYDROCHLORIDE. [Suspect]
     Active Substance: LOPERAMIDE HYDROCHLORIDE
     Indication: DIARRHOEA INFECTIOUS
     Dosage: 4 MG, BID
     Dates: start: 20180113, end: 20180118

REACTIONS (4)
  - Drug ineffective [Unknown]
  - Vomiting [Unknown]
  - Intentional product use issue [Recovered/Resolved]
  - Incorrect product administration duration [Recovered/Resolved]

NARRATIVE: CASE EVENT DATE: 20180113
